FAERS Safety Report 7309103-5 (Version None)
Quarter: 2011Q1

REPORT INFORMATION
  Report Type: 
  Country: None (occurrence: None)
  Receive Date: 20110223
  Receipt Date: 20110212
  Transmission Date: 20110831
  Serious: Yes (Hospitalization)
  Sender: FDA-Public Use
  Company Number: US-SANOFI-AVENTIS-2011SA010646

PATIENT
  Sex: Male

DRUGS (1)
  1. LANTUS [Suspect]
     Route: 065

REACTIONS (2)
  - HEPATITIS [None]
  - ENCEPHALOPATHY [None]
